FAERS Safety Report 21390915 (Version 2)
Quarter: 2022Q4

REPORT INFORMATION
  Report Type: Spontaneous
  Country: CN (occurrence: CN)
  Receive Date: 20220929
  Receipt Date: 20221007
  Transmission Date: 20230113
  Serious: Yes (Hospitalization, Other)
  Sender: FDA-Public Use
  Company Number: CN-MLMSERVICE-20220916-3801933-1

PATIENT
  Age: 25 Year
  Sex: Male
  Weight: 86 kg

DRUGS (7)
  1. ZOLPIDEM TARTRATE [Suspect]
     Active Substance: ZOLPIDEM TARTRATE
     Indication: Insomnia
     Dosage: 10 MG, HS
  2. ZOLPIDEM TARTRATE [Suspect]
     Active Substance: ZOLPIDEM TARTRATE
     Indication: Depression
     Dosage: 10 MG, HS
  3. ZOLPIDEM TARTRATE [Suspect]
     Active Substance: ZOLPIDEM TARTRATE
     Indication: Hypnotherapy
     Dosage: 20 MG (ANOTHER 10 MG OF ZOLPIDEM ON HIS OWN)
  4. ZOLPIDEM TARTRATE [Suspect]
     Active Substance: ZOLPIDEM TARTRATE
     Dosage: 30 MG, HS (AVERAGE OF 30 MG EVERY NIGHT)
  5. ZOLPIDEM TARTRATE [Suspect]
     Active Substance: ZOLPIDEM TARTRATE
     Dosage: 80 MG, ONCE OR TWICE WEEKLY
  6. FLUOXETINE [Suspect]
     Active Substance: FLUOXETINE HYDROCHLORIDE
     Indication: Depression
     Dosage: 20 MG, QD
  7. FLUOXETINE [Suspect]
     Active Substance: FLUOXETINE HYDROCHLORIDE
     Dosage: 20 MG, QD

REACTIONS (37)
  - Logorrhoea [Recovered/Resolved]
  - Road traffic accident [Recovered/Resolved]
  - Impaired driving ability [Recovered/Resolved]
  - Hyperphagia [Recovered/Resolved]
  - Abnormal behaviour [Recovered/Resolved]
  - Restlessness [Recovered/Resolved]
  - Euphoric mood [Recovered/Resolved]
  - Intentional overdose [Recovered/Resolved]
  - Withdrawal syndrome [Recovered/Resolved]
  - Drug interaction [Recovered/Resolved]
  - Drug dependence [Recovered/Resolved]
  - Insomnia [Recovered/Resolved]
  - Head discomfort [Recovered/Resolved]
  - Influenza like illness [Recovered/Resolved]
  - Eye swelling [Recovered/Resolved]
  - Myalgia [Recovered/Resolved]
  - Muscle tightness [Recovered/Resolved]
  - Irritability [Recovered/Resolved]
  - Lacrimation increased [Recovered/Resolved]
  - Rhinorrhoea [Recovered/Resolved]
  - Drooling [Recovered/Resolved]
  - Nausea [Recovered/Resolved]
  - Vomiting [Recovered/Resolved]
  - Paraesthesia [Recovered/Resolved]
  - Loss of consciousness [Recovered/Resolved]
  - Staring [Recovered/Resolved]
  - Dyskinesia [Recovered/Resolved]
  - Muscle twitching [Recovered/Resolved]
  - Hallucination [Recovered/Resolved]
  - Urinary incontinence [Recovered/Resolved]
  - Generalised tonic-clonic seizure [Recovered/Resolved]
  - Nervousness [Recovered/Resolved]
  - Hyperhidrosis [Recovered/Resolved]
  - Tremor [Recovered/Resolved]
  - Anxiety [Recovered/Resolved]
  - Palpitations [Recovered/Resolved]
  - Drug abuse [Unknown]
